FAERS Safety Report 6302742-X (Version None)
Quarter: 2009Q3

REPORT INFORMATION
  Report Type: 
  Country: None (occurrence: None)
  Receive Date: 20090810
  Receipt Date: 20090731
  Transmission Date: 20100115
  Serious: Yes (Hospitalization, Disabling)
  Sender: FDA-Public Use
  Company Number: PHHO2009CA09598

PATIENT
  Sex: Male
  Weight: 80 kg

DRUGS (2)
  1. RAD 666 RAD+TAB+PTR [Suspect]
     Indication: HEART TRANSPLANT
     Dosage: UNK
     Route: 048
     Dates: start: 20090629
  2. CYCLOSPORINE [Concomitant]
     Dosage: 75 MG, BID

REACTIONS (2)
  - POSTOPERATIVE THORACIC PROCEDURE COMPLICATION [None]
  - WOUND DEHISCENCE [None]
